FAERS Safety Report 17649171 (Version 1)
Quarter: 2020Q2

REPORT INFORMATION
  Report Type: Spontaneous
  Country: CO (occurrence: CO)
  Receive Date: 20200409
  Receipt Date: 20200409
  Transmission Date: 20200713
  Serious: Yes (Hospitalization, Other)
  Sender: FDA-Public Use
  Company Number: CO-RECORDATI RARE DISEASES-2082553

PATIENT
  Age: 33 Year
  Sex: Male

DRUGS (2)
  1. SIGNIFOR LAR [Suspect]
     Active Substance: PASIREOTIDE PAMOATE
     Indication: ACROMEGALY
     Route: 030
     Dates: start: 20190104, end: 20191010
  2. SIGNIFOR LAR [Suspect]
     Active Substance: PASIREOTIDE PAMOATE
     Route: 030
     Dates: start: 20191010

REACTIONS (15)
  - Investigation abnormal [Unknown]
  - Injury [Unknown]
  - Chills [Recovered/Resolved]
  - Cold sweat [Recovered/Resolved]
  - Skin lesion [Unknown]
  - Hormone level abnormal [Unknown]
  - Vomiting [Recovered/Resolved]
  - Headache [Unknown]
  - Bacterial infection [Unknown]
  - Pyrexia [Unknown]
  - Ulcer [Unknown]
  - Fall [Not Recovered/Not Resolved]
  - Infection [Unknown]
  - Back injury [Unknown]
  - Tachycardia [Recovered/Resolved]

NARRATIVE: CASE EVENT DATE: 20191008
